FAERS Safety Report 4999371-7 (Version None)
Quarter: 2006Q2

REPORT INFORMATION
  Report Type: 
  Country: None (occurrence: None)
  Receive Date: 20060509
  Receipt Date: 20060428
  Transmission Date: 20061013
  Serious: Yes (Hospitalization)
  Sender: FDA-Public Use
  Company Number: GXKR2006US02420

PATIENT
  Age: 4 Year
  Sex: Female

DRUGS (4)
  1. DOXORUBICIN HCL [Suspect]
     Indication: CASTLEMAN'S DISEASE
     Dosage: 25 MG/M2
  2. VINCRISTINE [Suspect]
     Indication: CASTLEMAN'S DISEASE
     Dosage: 1.4 MG/M2
  3. PREDNISONE [Suspect]
     Indication: CASTLEMAN'S DISEASE
     Dosage: 100 MG/M2, QD
  4. CYCLOPHOSPHAMIDE [Suspect]
     Indication: CASTLEMAN'S DISEASE
     Dosage: 750 MG/M2

REACTIONS (1)
  - NEUTROPENIA [None]
